FAERS Safety Report 7888378-8 (Version None)
Quarter: 2011Q4

REPORT INFORMATION
  Report Type: 
  Country: None (occurrence: None)
  Receive Date: 20111101
  Receipt Date: 20111017
  Transmission Date: 20120403
  Serious: Yes (Other)
  Sender: FDA-Public Use
  Company Number: DSJ-2011-22667

PATIENT
  Age: 49 Year
  Sex: Female

DRUGS (2)
  1. BENICAR HCT [Suspect]
     Indication: HYPERTENSION
     Dosage: 20/12.5 MG (1 IN 1 D), PER ORAL
     Route: 048
     Dates: start: 20100601
  2. AMIODARONE HCL [Concomitant]

REACTIONS (3)
  - THYROID CANCER [None]
  - DRUG INEFFECTIVE [None]
  - LYMPHOMA [None]
